FAERS Safety Report 8343472-2 (Version None)
Quarter: 2012Q2

REPORT INFORMATION
  Report Type: 
  Country: None (occurrence: None)
  Receive Date: 20120508
  Receipt Date: 20100514
  Transmission Date: 20120825
  Serious: Yes (Hospitalization)
  Sender: FDA-Public Use
  Company Number: US-TEVA-2010002750

PATIENT
  Age: 86 Year
  Sex: Male

DRUGS (6)
  1. TREANDA [Suspect]
     Route: 042
     Dates: start: 20091201, end: 20091201
  2. TREANDA [Suspect]
     Route: 042
     Dates: start: 20100301, end: 20100316
  3. TREANDA [Suspect]
     Indication: NON-HODGKIN'S LYMPHOMA
     Route: 042
     Dates: start: 20091201, end: 20091201
  4. RITUXAN [Concomitant]
     Indication: NON-HODGKIN'S LYMPHOMA
     Dates: start: 20091201, end: 20100301
  5. NEXIUM [Concomitant]
     Indication: HYPERCHLORHYDRIA
  6. TREANDA [Suspect]
     Route: 042
     Dates: start: 20100101

REACTIONS (8)
  - NAUSEA [None]
  - FALL [None]
  - DEMENTIA [None]
  - BONE MARROW FAILURE [None]
  - DIARRHOEA [None]
  - BLOOD BILIRUBIN INCREASED [None]
  - VOMITING [None]
  - CONFUSIONAL STATE [None]
